FAERS Safety Report 22073006 (Version 2)
Quarter: 2023Q1

REPORT INFORMATION
  Report Type: Report from Study
  Country: US (occurrence: US)
  Receive Date: 20230308
  Receipt Date: 20230331
  Transmission Date: 20230418
  Serious: No
  Sender: FDA-Public Use
  Company Number: US-002147023-NVSC2023US048536

PATIENT
  Age: 62 Year
  Sex: Female

DRUGS (5)
  1. KESIMPTA [Suspect]
     Active Substance: OFATUMUMAB
     Indication: Multiple sclerosis
     Dosage: 20 MG, QMO
     Route: 058
     Dates: start: 20230220
  2. KESIMPTA [Suspect]
     Active Substance: OFATUMUMAB
     Dosage: 20 DOSAGE FORM, QMO
     Route: 058
     Dates: start: 20230228
  3. MYRBETRIQ [Concomitant]
     Active Substance: MIRABEGRON
     Indication: Product used for unknown indication
     Dosage: UNK
     Route: 065
  4. PRAMIPEXOLE [Concomitant]
     Active Substance: PRAMIPEXOLE
     Indication: Product used for unknown indication
     Dosage: UNK
     Route: 065
  5. SUMATRIPTAN [Concomitant]
     Active Substance: SUMATRIPTAN
     Indication: Product used for unknown indication
     Dosage: UNK
     Route: 065

REACTIONS (5)
  - Movement disorder [Recovered/Resolved]
  - Confusional state [Recovered/Resolved]
  - Accidental exposure to product [Recovered/Resolved]
  - Incorrect dose administered by device [Unknown]
  - Device malfunction [Unknown]

NARRATIVE: CASE EVENT DATE: 20230220
